FAERS Safety Report 21935995 (Version 1)
Quarter: 2023Q1

REPORT INFORMATION
  Report Type: Spontaneous
  Country: FR (occurrence: FR)
  Receive Date: 20230201
  Receipt Date: 20230201
  Transmission Date: 20230417
  Serious: Yes (Hospitalization)
  Sender: FDA-Public Use
  Company Number: None

PATIENT
  Age: 63 Year
  Sex: Male

DRUGS (5)
  1. DIAZEPAM [Suspect]
     Active Substance: DIAZEPAM
     Indication: Withdrawal syndrome
     Dosage: ; AS REQUIRED
     Route: 050
     Dates: start: 20230105, end: 20230109
  2. AMOXICILLIN [Suspect]
     Active Substance: AMOXICILLIN
     Indication: Pneumonia
     Route: 050
     Dates: start: 20230105, end: 20230110
  3. LOVENOX 4000 UI anti-Xa/0,4 ml, solution injectable en seringue pre... [Concomitant]
     Indication: Product used for unknown indication
     Route: 050
     Dates: start: 20230105, end: 20230107
  4. ROVAMYCINE 1 500 000 UI, comprime pellicule [Concomitant]
     Indication: Product used for unknown indication
     Dosage: ; IN TOTAL
     Route: 050
     Dates: start: 20230105, end: 20230105
  5. CEFOTAXIME SODIUM [Concomitant]
     Active Substance: CEFOTAXIME SODIUM
     Indication: Product used for unknown indication
     Dosage: ; IN TOTAL
     Route: 050
     Dates: start: 20230105, end: 20230105

REACTIONS (1)
  - Thrombocytopenia [Recovering/Resolving]

NARRATIVE: CASE EVENT DATE: 20230105
